FAERS Safety Report 10150844 (Version 1)
Quarter: 2014Q2

REPORT INFORMATION
  Report Type: Report from Study
  Country: US (occurrence: US)
  Receive Date: 20140502
  Receipt Date: 20140502
  Transmission Date: 20141212
  Serious: Yes (Hospitalization, Other)
  Sender: FDA-Public Use
  Company Number: US-ABBVIE-14P-163-1230054-00

PATIENT
  Sex: Female
  Weight: 102.15 kg

DRUGS (18)
  1. HUMIRA [Suspect]
     Indication: PSORIASIS
     Dosage: PFS
     Route: 058
     Dates: start: 2005, end: 2008
  2. HUMIRA [Suspect]
     Indication: PSORIATIC ARTHROPATHY
  3. HUMIRA [Suspect]
     Indication: PSORIASIS
     Route: 058
     Dates: start: 2009, end: 2010
  4. HUMIRA [Suspect]
     Indication: PSORIATIC ARTHROPATHY
  5. METHOTREXATE [Concomitant]
     Indication: PSORIASIS
     Route: 048
     Dates: end: 201310
  6. METHOTREXATE [Concomitant]
     Indication: PSORIATIC ARTHROPATHY
  7. METHOTREXATE [Concomitant]
     Indication: PSORIATIC ARTHROPATHY
     Route: 050
  8. MELOXICAM [Concomitant]
     Indication: PSORIATIC ARTHROPATHY
  9. PRILOSEC [Concomitant]
     Indication: ABDOMINAL DISCOMFORT
  10. HYDROXYZINE [Concomitant]
     Indication: PRURITUS
  11. FOLIC ACID [Concomitant]
     Indication: VITAMIN SUPPLEMENTATION
  12. NEURONTIN [Concomitant]
     Indication: NEUROPATHY PERIPHERAL
  13. FIORICET [Concomitant]
     Indication: HEADACHE
     Dosage: 50/325MG
  14. METHADONE [Concomitant]
     Indication: PAIN
  15. NORCO [Concomitant]
     Indication: PAIN
     Dosage: 10/325MG  PRN
  16. HCTZ [Concomitant]
     Indication: HYPERTENSION
  17. METOPROLOL [Concomitant]
     Indication: HYPERTENSION
  18. ASPIRIN [Concomitant]
     Indication: THROMBOSIS PROPHYLAXIS
     Dates: start: 2005

REACTIONS (15)
  - Hemiplegia [Recovered/Resolved]
  - Abdominal pain upper [Recovered/Resolved]
  - Appendicitis perforated [Recovered/Resolved]
  - Dysarthria [Recovered/Resolved]
  - Fall [Recovered/Resolved]
  - Carotid artery thrombosis [Recovered/Resolved]
  - Cerebrovascular accident [Recovered/Resolved]
  - Psoriasis [Recovered/Resolved]
  - Wound infection [Not Recovered/Not Resolved]
  - Wound drainage [Not Recovered/Not Resolved]
  - Pain [Not Recovered/Not Resolved]
  - Psoriasis [Not Recovered/Not Resolved]
  - Alopecia [Recovering/Resolving]
  - Weight loss poor [Not Recovered/Not Resolved]
  - Hypothyroidism [Not Recovered/Not Resolved]
